FAERS Safety Report 14665145 (Version 1)
Quarter: 2018Q1

REPORT INFORMATION
  Report Type: Spontaneous
  Country: US (occurrence: US)
  Receive Date: 20180320
  Receipt Date: 20180320
  Transmission Date: 20180509
  Serious: Yes (Death)
  Sender: FDA-Public Use
  Company Number: None

PATIENT
  Sex: Male

DRUGS (3)
  1. MIDODRINE 10 MG [Concomitant]
  2. LYRICA [Concomitant]
     Active Substance: PREGABALIN
  3. PROCRIT [Suspect]
     Active Substance: ERYTHROPOIETIN
     Indication: ANAEMIA
     Dosage: OTHER FREQUENCY:MWF;?
     Route: 058

REACTIONS (1)
  - Disease progression [None]
